FAERS Safety Report 8339165-8 (Version None)
Quarter: 2012Q2

REPORT INFORMATION
  Report Type: 
  Country: None (occurrence: None)
  Receive Date: 20120507
  Receipt Date: 20120502
  Transmission Date: 20120825
  Serious: Yes (Other)
  Sender: FDA-Public Use
  Company Number: CH-BAYER-2012-042909

PATIENT
  Age: 56 Year
  Sex: Female
  Weight: 74 kg

DRUGS (8)
  1. SURMONTIL [Concomitant]
     Indication: HEADACHE
     Dosage: 200 MG, QD
     Route: 048
  2. OXAZEPAM [Concomitant]
     Indication: SLEEP DISORDER
     Dosage: 30 MG, QD
     Route: 048
  3. RIBOFLAVIN [Concomitant]
     Indication: VITAMIN SUPPLEMENTATION
     Dosage: DAILY DOSE 400 MG
     Route: 048
  4. FEMICIN [Concomitant]
     Indication: MENOPAUSE
     Dosage: DAILY DOSE 6.5 MG
     Route: 048
  5. BETASERON [Suspect]
     Indication: MULTIPLE SCLEROSIS
     Dosage: 4 MIU, TIW
     Route: 058
     Dates: start: 19950101
  6. NAPROXEN [Concomitant]
     Indication: INFLUENZA LIKE ILLNESS
     Dosage: 275 MG, TIW
     Route: 048
  7. FOSICOMP [Concomitant]
     Indication: HYPERTENSION
     Dosage: DAILY DOSE 10 MG
     Route: 048
  8. TOLTERODINE TARTRATE [Concomitant]
     Indication: BLADDER DISORDER
     Dosage: DAILY DOSE 4 MG
     Route: 048

REACTIONS (2)
  - PARAPLEGIA [None]
  - MUSCLE SPASTICITY [None]
